FAERS Safety Report 7085769-2 (Version None)
Quarter: 2010Q4

REPORT INFORMATION
  Report Type: 
  Country: None (occurrence: None)
  Receive Date: 20101105
  Receipt Date: 20101026
  Transmission Date: 20110411
  Serious: Yes (Other)
  Sender: FDA-Public Use
  Company Number: IT-PFIZER INC-2010136392

PATIENT
  Age: 15 Year
  Sex: Female

DRUGS (2)
  1. ZOLOFT [Suspect]
     Dosage: 15 TABLETS OF 50 MG
     Route: 048
     Dates: start: 20101001, end: 20101001
  2. TOPAMAX [Suspect]
     Dosage: 20 TABLETS OF 100 MG
     Route: 048
     Dates: start: 20101001, end: 20101001

REACTIONS (2)
  - DRUG ABUSE [None]
  - INTENTIONAL DRUG MISUSE [None]
